FAERS Safety Report 4797977-1 (Version None)
Quarter: 2005Q3

REPORT INFORMATION
  Report Type: 
  Country: None (occurrence: None)
  Receive Date: 20050929
  Receipt Date: 20050830
  Transmission Date: 20060218
  Serious: No
  Sender: FDA-Public Use
  Company Number: 05P-163-0309768

PATIENT
  Age: 56 Year
  Sex: Female
  Weight: 61.2356 kg

DRUGS (10)
  1. HUMIRA [Suspect]
     Indication: RHEUMATOID ARTHRITIS
     Dosage: 40 MG, 1 IN 1 WK, SUBCUTANEOUS
     Route: 058
     Dates: start: 20050814
  2. METHOTREXATE SODIUM [Concomitant]
  3. TOPROL-XL [Concomitant]
  4. LEVOTHYROXINE SODIUM [Concomitant]
  5. FISH OIL [Concomitant]
  6. CALCIUM GLUCONATE [Concomitant]
  7. FOLIC ACID [Concomitant]
  8. MULTI-VITAMINS [Concomitant]
  9. METHYLPREDNISOLONE [Concomitant]
  10. ASCORBIC ACID [Concomitant]

REACTIONS (1)
  - DIARRHOEA [None]
